FAERS Safety Report 4655309-3 (Version None)
Quarter: 2005Q2

REPORT INFORMATION
  Report Type: 
  Country: None (occurrence: None)
  Receive Date: 20050404
  Receipt Date: 20041112
  Transmission Date: 20051028
  Serious: No
  Sender: FDA-Public Use
  Company Number: USA041183942

PATIENT
  Sex: Female

DRUGS (2)
  1. CYMBALTA [Suspect]
     Dosage: 30 MG/2 DAY
     Dates: start: 20040101, end: 20040101
  2. TOPAMAX [Concomitant]

REACTIONS (1)
  - WEIGHT INCREASED [None]
